APPROVED DRUG PRODUCT: NISOLDIPINE
Active Ingredient: NISOLDIPINE
Strength: 17MG
Dosage Form/Route: TABLET, EXTENDED RELEASE;ORAL
Application: A216606 | Product #002 | TE Code: AB
Applicant: AMTA LABS LTD
Approved: Dec 12, 2025 | RLD: No | RS: No | Type: RX